FAERS Safety Report 14503768 (Version 11)
Quarter: 2020Q3

REPORT INFORMATION
  Report Type: Report from Study
  Country: GT (occurrence: GT)
  Receive Date: 20180208
  Receipt Date: 20200924
  Transmission Date: 20201102
  Serious: Yes (Death, Hospitalization, Other)
  Sender: FDA-Public Use
  Company Number: PHHY2018GT018912

PATIENT
  Sex: Female

DRUGS (8)
  1. GILENYA [Suspect]
     Active Substance: FINGOLIMOD HYDROCHLORIDE
     Dosage: 0.5 MG, QD
     Route: 048
     Dates: start: 20180623
  2. GILENYA [Suspect]
     Active Substance: FINGOLIMOD HYDROCHLORIDE
     Indication: MULTIPLE SCLEROSIS
     Dosage: 0.5 MG, UNK
     Route: 048
     Dates: start: 201712, end: 201712
  3. GILENYA [Suspect]
     Active Substance: FINGOLIMOD HYDROCHLORIDE
     Dosage: 0.5 MG, QD
     Route: 048
     Dates: start: 20200701
  4. CYCLOPHOSPHAMIDE. [Suspect]
     Active Substance: CYCLOPHOSPHAMIDE
     Indication: PRODUCT USED FOR UNKNOWN INDICATION
     Dosage: UNK
     Route: 065
  5. GILENYA [Suspect]
     Active Substance: FINGOLIMOD HYDROCHLORIDE
     Dosage: 0.5 MG, QD
     Route: 048
     Dates: start: 20200630
  6. GILENYA [Suspect]
     Active Substance: FINGOLIMOD HYDROCHLORIDE
     Dosage: 0.5 MG, QD
     Route: 048
  7. GILENYA [Suspect]
     Active Substance: FINGOLIMOD HYDROCHLORIDE
     Dosage: 0.5 MG, QD
     Route: 048
     Dates: start: 20200702
  8. GILENYA [Suspect]
     Active Substance: FINGOLIMOD HYDROCHLORIDE
     Dosage: 0.5 MG, QD
     Route: 048
     Dates: start: 20180724

REACTIONS (29)
  - Urine output decreased [Unknown]
  - Decreased appetite [Unknown]
  - Urinary tract infection [Unknown]
  - Peripheral swelling [Unknown]
  - Fluid retention [Unknown]
  - Herpes virus infection [Unknown]
  - Decreased immune responsiveness [Unknown]
  - Feeling cold [Unknown]
  - White blood cell count decreased [Unknown]
  - Blood creatinine abnormal [Fatal]
  - Tremor [Unknown]
  - Gait disturbance [Not Recovered/Not Resolved]
  - Vomiting [Unknown]
  - Renal cyst [Unknown]
  - Malaise [Unknown]
  - Glomerulonephritis membranous [Unknown]
  - Blood potassium increased [Unknown]
  - Dysuria [Unknown]
  - Urine analysis abnormal [Unknown]
  - Nausea [Unknown]
  - Nephrotic syndrome [Fatal]
  - Protein total abnormal [Fatal]
  - Cerebrovascular accident [Unknown]
  - Anxiety [Unknown]
  - Ageusia [Unknown]
  - Faeces discoloured [Unknown]
  - Tinnitus [Unknown]
  - Pain [Unknown]
  - Weight increased [Unknown]
